FAERS Safety Report 20922282 (Version 1)
Quarter: 2022Q2

REPORT INFORMATION
  Report Type: Spontaneous
  Country: US (occurrence: US)
  Receive Date: 20220607
  Receipt Date: 20220607
  Transmission Date: 20220721
  Serious: Yes (Other)
  Sender: FDA-Public Use
  Company Number: US-STRIDES ARCOLAB LIMITED-2022SP004484

PATIENT
  Age: 18 Year

DRUGS (13)
  1. CYCLOSPORINE [Suspect]
     Active Substance: CYCLOSPORINE
     Indication: Prophylaxis against graft versus host disease
     Dosage: UNK
     Route: 065
  2. PREDNISOLONE [Suspect]
     Active Substance: PREDNISOLONE
     Indication: Chronic graft versus host disease in skin
     Dosage: 0.06 MILLIGRAM/KILOGRAM
     Route: 065
  3. PREDNISOLONE [Suspect]
     Active Substance: PREDNISOLONE
     Indication: Chronic graft versus host disease in eye
  4. METHOTREXATE [Suspect]
     Active Substance: METHOTREXATE
     Indication: Prophylaxis against graft versus host disease
     Dosage: UNK
     Route: 065
  5. ABATACEPT [Suspect]
     Active Substance: ABATACEPT
     Indication: Prophylaxis against graft versus host disease
     Dosage: UNK
     Route: 065
  6. BASILIXIMAB [Suspect]
     Active Substance: BASILIXIMAB
     Indication: Chronic graft versus host disease in skin
     Dosage: UNK
     Route: 065
  7. BASILIXIMAB [Suspect]
     Active Substance: BASILIXIMAB
     Indication: Chronic graft versus host disease in eye
  8. INFLIXIMAB [Suspect]
     Active Substance: INFLIXIMAB
     Indication: Chronic graft versus host disease in skin
     Dosage: UNK
     Route: 065
  9. INFLIXIMAB [Suspect]
     Active Substance: INFLIXIMAB
     Indication: Chronic graft versus host disease in eye
  10. IBRUTINIB [Suspect]
     Active Substance: IBRUTINIB
     Indication: Chronic graft versus host disease in skin
     Dosage: UNK
     Route: 065
  11. IBRUTINIB [Suspect]
     Active Substance: IBRUTINIB
     Indication: Chronic graft versus host disease in eye
  12. RUXOLITINIB [Suspect]
     Active Substance: RUXOLITINIB
     Indication: Chronic graft versus host disease in skin
     Dosage: 5 MILLIGRAM PER DAY
     Route: 048
  13. RUXOLITINIB [Suspect]
     Active Substance: RUXOLITINIB
     Indication: Chronic graft versus host disease in eye

REACTIONS (2)
  - Drug ineffective [Unknown]
  - Infection reactivation [Unknown]
